FAERS Safety Report 20096495 (Version 2)
Quarter: 2021Q4

REPORT INFORMATION
  Report Type: Spontaneous
  Country: US (occurrence: US)
  Receive Date: 20211122
  Receipt Date: 20211129
  Transmission Date: 20220303
  Serious: Yes (Other)
  Sender: FDA-Public Use
  Company Number: US-AMGEN-USASP2021180329

PATIENT
  Age: 79 Year
  Sex: Male

DRUGS (1)
  1. REPATHA [Suspect]
     Active Substance: EVOLOCUMAB
     Indication: Hypercholesterolaemia
     Dosage: UNK
     Route: 065

REACTIONS (4)
  - Cataract [Unknown]
  - Nephrolithiasis [Recovered/Resolved]
  - Intestinal obstruction [Recovering/Resolving]
  - Arterial repair [Recovering/Resolving]

NARRATIVE: CASE EVENT DATE: 20210101
